FAERS Safety Report 18961257 (Version 1)
Quarter: 2021Q1

REPORT INFORMATION
  Report Type: Spontaneous
  Country: IT (occurrence: IT)
  Receive Date: 20210303
  Receipt Date: 20210303
  Transmission Date: 20210420
  Serious: Yes (Congenital Anomaly, Other)
  Sender: FDA-Public Use
  Company Number: IT-LUPIN PHARMACEUTICALS INC.-2021-02687

PATIENT
  Sex: Male
  Weight: 1.66 kg

DRUGS (8)
  1. CALCIUM [Suspect]
     Active Substance: CALCIUM
     Indication: ANAEMIA OF PREGNANCY
  2. IRON [Suspect]
     Active Substance: IRON
     Indication: VITAMIN B COMPLEX DEFICIENCY
  3. CALCIUM [Suspect]
     Active Substance: CALCIUM
     Indication: VITAMIN B COMPLEX DEFICIENCY
     Dosage: UNK
     Route: 064
  4. IRON [Suspect]
     Active Substance: IRON
     Indication: ANAEMIA OF PREGNANCY
     Dosage: UNK
     Route: 064
  5. VITAMINS NOS [Suspect]
     Active Substance: VITAMINS
     Indication: ANAEMIA OF PREGNANCY
     Dosage: UNK
     Route: 064
  6. VITAMINS NOS [Suspect]
     Active Substance: VITAMINS
     Indication: VITAMIN B COMPLEX DEFICIENCY
  7. FOLIC ACID. [Suspect]
     Active Substance: FOLIC ACID
     Indication: VITAMIN B COMPLEX DEFICIENCY
  8. FOLIC ACID. [Suspect]
     Active Substance: FOLIC ACID
     Indication: ANAEMIA OF PREGNANCY
     Dosage: UNK
     Route: 064

REACTIONS (20)
  - Microphthalmos [Unknown]
  - Iris coloboma [Unknown]
  - Prominent epicanthal folds [Unknown]
  - Brachydactyly [Unknown]
  - Congenital genitourinary abnormality [Unknown]
  - Penoscrotal fusion [Unknown]
  - Skull malformation [Unknown]
  - Cryptorchism [Unknown]
  - Foetal growth restriction [Unknown]
  - Foetal exposure during pregnancy [Unknown]
  - Hypospadias [Unknown]
  - Intellectual disability [Unknown]
  - Cerebral ventricle dilatation [Unknown]
  - Dysmorphism [Unknown]
  - Failure to thrive [Unknown]
  - Premature baby [Unknown]
  - Eyelid disorder [Unknown]
  - Clinodactyly [Unknown]
  - Low birth weight baby [Unknown]
  - Deafness neurosensory [Unknown]
